FAERS Safety Report 16189163 (Version 1)
Quarter: 2019Q2

REPORT INFORMATION
  Report Type: Spontaneous
  Country: AT (occurrence: AT)
  Receive Date: 20190412
  Receipt Date: 20190412
  Transmission Date: 20190711
  Serious: Yes (Other)
  Sender: FDA-Public Use
  Company Number: AT-TEVA-2019-AT-1036878

PATIENT
  Sex: Male
  Weight: 80 kg

DRUGS (1)
  1. MIRTABENE 30MG FILMTABLETTEN [Suspect]
     Active Substance: MIRTAZAPINE

REACTIONS (1)
  - Circulatory collapse [Unknown]
